FAERS Safety Report 7978467-1 (Version None)
Quarter: 2011Q4

REPORT INFORMATION
  Report Type: 
  Country: None (occurrence: None)
  Receive Date: 20111214
  Receipt Date: 20111201
  Transmission Date: 20120403
  Serious: Yes (Other)
  Sender: FDA-Public Use
  Company Number: ZA-ELI_LILLY_AND_COMPANY-ZA201112001147

PATIENT
  Age: 16 Year
  Weight: 45 kg

DRUGS (1)
  1. STRATTERA [Suspect]
     Indication: ATTENTION DEFICIT/HYPERACTIVITY DISORDER
     Dosage: 1 DF, UNK
     Route: 048

REACTIONS (4)
  - CARDIAC DISORDER [None]
  - DECREASED APPETITE [None]
  - SYNCOPE [None]
  - UNDERWEIGHT [None]
